FAERS Safety Report 5024044-4 (Version None)
Quarter: 2006Q2

REPORT INFORMATION
  Report Type: 
  Country: None (occurrence: None)
  Receive Date: 20060607
  Receipt Date: 20060603
  Transmission Date: 20061013
  Serious: Yes (Other)
  Sender: FDA-Public Use
  Company Number: 217526

PATIENT
  Age: 3 Year
  Sex: Male

DRUGS (1)
  1. NUTROPIN [Suspect]
     Indication: GROWTH HORMONE DEFICIENCY
     Dosage: 0.28 MG/KG, SUBCUTANEOUS
     Route: 058
     Dates: start: 20050101

REACTIONS (12)
  - ABDOMINAL PAIN [None]
  - ASTHENIA [None]
  - CHEST INJURY [None]
  - DRUG INEFFECTIVE [None]
  - DYSPNOEA EXERTIONAL [None]
  - FALL [None]
  - HEAD INJURY [None]
  - HEART INJURY [None]
  - HYPERVENTILATION [None]
  - NEUROMYOPATHY [None]
  - PAIN [None]
  - TACHYPNOEA [None]
